FAERS Safety Report 6670290-3 (Version None)
Quarter: 2010Q2

REPORT INFORMATION
  Report Type: 
  Country: None (occurrence: None)
  Receive Date: 20100405
  Receipt Date: 20100319
  Transmission Date: 20101027
  Serious: Yes (Hospitalization, Other)
  Sender: FDA-Public Use
  Company Number: 2009003926

PATIENT
  Age: 82 Year
  Sex: Male

DRUGS (16)
  1. ERLOTINIB HYDROCHLORIDE [Suspect]
     Indication: HEPATIC NEOPLASM MALIGNANT NON-RESECTABLE
     Dosage: (150 MG, QD), ORAL
     Route: 048
     Dates: start: 20091120, end: 20091210
  2. SORAFENIB [Suspect]
     Indication: HEPATIC NEOPLASM MALIGNANT NON-RESECTABLE
     Dosage: (800 MG, QD), ORAL
     Route: 048
     Dates: start: 20091120, end: 20091210
  3. TAZOCIN (PIP/TAZO) [Concomitant]
  4. FLUCONAZOLE [Concomitant]
  5. SODIUM CHLORIDE 0.9% [Concomitant]
  6. ALLIOPURINOL (ALLOPURINOL) [Concomitant]
  7. ASPIRIN [Concomitant]
  8. CANDESARTAN CILEXETIL [Concomitant]
  9. BISOPROLOL FUMARATE [Concomitant]
  10. SIMVASTATIN [Concomitant]
  11. ACETAMINOPHEN [Concomitant]
  12. FUCIDIN H OINTMENT (FUSIDATE SODIUM) [Concomitant]
  13. FORTISLIP (FORTISLIP) [Concomitant]
  14. FUSIDIC ACID [Concomitant]
  15. MUPIROCIN [Concomitant]
  16. DERMOL (DERMOL) [Concomitant]

REACTIONS (8)
  - DECREASED APPETITE [None]
  - DIARRHOEA [None]
  - DYSPHAGIA [None]
  - FATIGUE [None]
  - IMPETIGO [None]
  - LETHARGY [None]
  - MOUTH ULCERATION [None]
  - ORAL CANDIDIASIS [None]
